FAERS Safety Report 24027237 (Version 1)
Quarter: 2024Q2

REPORT INFORMATION
  Report Type: Spontaneous
  Country: US (occurrence: US)
  Receive Date: 20240628
  Receipt Date: 20240628
  Transmission Date: 20240716
  Serious: Yes (Hospitalization, Other)
  Sender: FDA-Public Use
  Company Number: US-HIKMA PHARMACEUTICALS USA INC.-US-H14001-24-05477

PATIENT
  Age: 7 Year
  Sex: Male

DRUGS (2)
  1. LEVOTHYROXINE [Suspect]
     Active Substance: LEVOTHYROXINE\LEVOTHYROXINE SODIUM
     Dosage: 100 MILLIGRAM, QD
     Route: 065
  2. LEVOTHYROXINE [Suspect]
     Active Substance: LEVOTHYROXINE\LEVOTHYROXINE SODIUM
     Indication: Hypothyroidism
     Dosage: UNKNOWN
     Route: 065

REACTIONS (3)
  - Electrocardiogram QRS complex prolonged [Unknown]
  - Hypotension [Unknown]
  - Cardiac arrest [Unknown]
